FAERS Safety Report 15466998 (Version 2)
Quarter: 2019Q2

REPORT INFORMATION
  Report Type: Spontaneous
  Country: US (occurrence: US)
  Receive Date: 20181005
  Receipt Date: 20190418
  Transmission Date: 20190711
  Serious: Yes (Other)
  Sender: FDA-Public Use
  Company Number: US-EMD SERONO-7061611

PATIENT
  Sex: Female

DRUGS (1)
  1. REBIF [Suspect]
     Active Substance: INTERFERON BETA-1A
     Indication: MULTIPLE SCLEROSIS
     Route: 058
     Dates: start: 20071012

REACTIONS (11)
  - Influenza like illness [Recovered/Resolved]
  - Fatigue [Unknown]
  - Pain [Unknown]
  - Back pain [Unknown]
  - Injection site erythema [Recovering/Resolving]
  - Somnolence [Unknown]
  - Feeling hot [Unknown]
  - Mobility decreased [Unknown]
  - Memory impairment [Not Recovered/Not Resolved]
  - Back disorder [Unknown]
  - Uterine leiomyoma [Unknown]
